FAERS Safety Report 4915842-3 (Version None)
Quarter: 2006Q1

REPORT INFORMATION
  Report Type: 
  Country: None (occurrence: None)
  Receive Date: 20060217
  Receipt Date: 20060206
  Transmission Date: 20060701
  Serious: Yes (Hospitalization, Other)
  Sender: FDA-Public Use
  Company Number: US-BRISTOL-MYERS SQUIBB COMPANY-13272489

PATIENT
  Age: 58 Year
  Sex: Female
  Weight: 42 kg

DRUGS (4)
  1. CETUXIMAB [Suspect]
     Indication: CERVIX CARCINOMA
     Dosage: INITIAL TX DATE: 05-JAN-06. ACTUAL DOSE: 357MG.  TOTAL DOSE ADM 1267MG.
     Route: 042
     Dates: start: 20060123, end: 20060123
  2. CISPLATIN [Suspect]
     Indication: CERVIX CARCINOMA
     Dosage: INITIAL TX DATE: 05-JAN-06. ACTUAL DOSE: 43MG.  TOTAL DOSE ADM: 127MG. DOSE TO BE REDUCED FOR C4.
     Route: 042
     Dates: start: 20060123, end: 20060123
  3. LONOX [Concomitant]
     Indication: DIARRHOEA
     Route: 048
     Dates: start: 20060125
  4. PEPTO-BISMOL [Concomitant]
     Indication: ABDOMINAL DISCOMFORT
     Route: 048
     Dates: start: 20060125

REACTIONS (5)
  - ANOREXIA [None]
  - DIARRHOEA [None]
  - FEBRILE NEUTROPENIA [None]
  - HYPOKALAEMIA [None]
  - ILEUS [None]
